FAERS Safety Report 9244594 (Version 2)
Quarter: 2013Q2

REPORT INFORMATION
  Report Type: Spontaneous
  Country: DK (occurrence: DK)
  Receive Date: 20130422
  Receipt Date: 20130429
  Transmission Date: 20140414
  Serious: Yes (Other)
  Sender: FDA-Public Use
  Company Number: DK-PFIZER INC-2013123226

PATIENT
  Sex: 0

DRUGS (1)
  1. CYTOTEC [Suspect]
     Indication: LABOUR INDUCTION
     Dosage: 50 UG, 1X/DAY FOR TWO DAYS
     Route: 064
     Dates: start: 2003, end: 2003

REACTIONS (2)
  - Maternal exposure during pregnancy [Unknown]
  - Asphyxia [Unknown]
